FAERS Safety Report 7208494-3 (Version None)
Quarter: 2010Q4

REPORT INFORMATION
  Report Type: 
  Country: None (occurrence: None)
  Receive Date: 20101222
  Receipt Date: 20101210
  Transmission Date: 20110411
  Serious: Yes (Other)
  Sender: FDA-Public Use
  Company Number: 2010005335

PATIENT
  Age: 80 Year
  Sex: Female
  Weight: 69.2643 kg

DRUGS (14)
  1. ERLOTINIB (ERLOTINIB) (TABLET) (ERLOTINIB) [Suspect]
     Indication: NON-SMALL CELL LUNG CANCER
     Dosage: 150 MG, QD, ORAL
     Route: 048
     Dates: start: 20101116
  2. SIMVASTATIN [Concomitant]
  3. METOPROLOL [Concomitant]
  4. LEVOTHYROXINE [Concomitant]
  5. VITAMIN TAB [Concomitant]
  6. FISH OIL [Concomitant]
  7. WARFARIN [Concomitant]
  8. MEGACE [Concomitant]
  9. HYDROCHLOROTHIAZIDE [Concomitant]
  10. LOVENOX [Concomitant]
  11. LORA TAB [Concomitant]
  12. SENNA [Concomitant]
  13. BISACODYL [Concomitant]
  14. FUROSEMIDE [Concomitant]

REACTIONS (8)
  - ATELECTASIS [None]
  - BLOOD POTASSIUM DECREASED [None]
  - BLOOD SODIUM DECREASED [None]
  - HAEMOGLOBIN DECREASED [None]
  - LYMPHADENOPATHY MEDIASTINAL [None]
  - MALIGNANT PLEURAL EFFUSION [None]
  - PLATELET COUNT INCREASED [None]
  - PNEUMONIA [None]
